FAERS Safety Report 5147239-8 (Version None)
Quarter: 2006Q4

REPORT INFORMATION
  Report Type: 
  Country: None (occurrence: None)
  Receive Date: 20061103
  Receipt Date: 20061025
  Transmission Date: 20070319
  Serious: Yes (Hospitalization)
  Sender: FDA-Public Use
  Company Number: US-2006-032589

PATIENT
  Age: 4 Year
  Sex: Male
  Weight: 18.6 kg

DRUGS (5)
  1. FLUDARA [Suspect]
     Indication: JUVENILE CHRONIC MYELOMONOCYTIC LEUKAEMIA
     Dosage: INTRAVENOUS
     Route: 042
     Dates: start: 20021217, end: 20021221
  2. TIPIFARNIB (TIPIFARNIB) [Suspect]
     Indication: JUVENILE CHRONIC MYELOMONOCYTIC LEUKAEMIA
     Dosage: 450 MG/D, ORAL
     Route: 048
     Dates: start: 20021125, end: 20021215
  3. CYTARABINE [Suspect]
     Indication: JUVENILE CHRONIC MYELOMONOCYTIC LEUKAEMIA
     Dates: start: 20021217, end: 20021221
  4. ISOTRETINOIN [Suspect]
     Indication: JUVENILE CHRONIC MYELOMONOCYTIC LEUKAEMIA
     Dosage: 1X/DAY
     Dates: start: 20021221, end: 20021229
  5. ISOTRETINOIN [Suspect]
     Indication: JUVENILE CHRONIC MYELOMONOCYTIC LEUKAEMIA
     Dosage: 1X/DAY
     Dates: start: 20030113

REACTIONS (4)
  - ANAEMIA [None]
  - CAECITIS [None]
  - DISEASE PROGRESSION [None]
  - FEBRILE NEUTROPENIA [None]
